FAERS Safety Report 23064833 (Version 2)
Quarter: 2024Q2

REPORT INFORMATION
  Report Type: Report from Study
  Country: GB (occurrence: GB)
  Receive Date: 20231013
  Receipt Date: 20240412
  Transmission Date: 20240717
  Serious: Yes (Other)
  Sender: FDA-Public Use
  Company Number: GB-CLINIGEN-GB-CLI-2023-031133

PATIENT
  Age: 45 Year
  Sex: Female
  Weight: 63.8 kg

DRUGS (63)
  1. CYCLOPHOSPHAMIDE [Suspect]
     Active Substance: CYCLOPHOSPHAMIDE
     Indication: Neoplasm
     Route: 065
     Dates: start: 20230905, end: 20230906
  2. QV CREAM [Concomitant]
     Indication: Rash
     Dosage: FOR SHOWERING; AS NECESSARY?					;
  3. CYCLOPHOSPHAMIDE [Suspect]
     Active Substance: CYCLOPHOSPHAMIDE
     Indication: Neoplasm
     Route: 042
     Dates: start: 20230905, end: 20230909
  4. AMIKACIN [Concomitant]
     Active Substance: AMIKACIN
     Indication: Sepsis
     Dosage: DOSAGE TEXT: 15 MILLIGRAM/KILOGRAM, ONLY ONCE; DURATION : 1 DAY
     Route: 050
     Dates: start: 20230914, end: 20230914
  5. BENZYDAMINE [Concomitant]
     Active Substance: BENZYDAMINE
     Indication: Oropharyngeal pain
     Dosage: SWISH + SPIT, PRN; AS NECESSARY?					;
     Dates: start: 20230909
  6. BENZYDAMINE [Concomitant]
     Active Substance: BENZYDAMINE
     Indication: Oropharyngeal pain
     Dosage: DOSAGE TEXT: SWISH + SPIT, PRN; AS NECESSARY
     Dates: start: 20230909
  7. BETAMETHASONE VALERATE [Concomitant]
     Active Substance: BETAMETHASONE VALERATE
     Indication: Rash
     Dosage: DOSAGE TEXT: UNK, QD
     Route: 050
     Dates: start: 20230919
  8. BETNOVATE [Concomitant]
     Active Substance: BETAMETHASONE
     Indication: Rash
     Dosage: TWICE A DAYS, AS PER NEED; AS NECESSARY?					;
     Dates: start: 20230914, end: 20230919
  9. BETNOVATE [Concomitant]
     Active Substance: BETAMETHASONE
     Indication: Rash
     Dosage: DOSAGE TEXT: TWICE A DAYS, AS PER NEED; AS NECESSARY, DURATION : 6 DAYS
     Route: 061
     Dates: start: 20230914, end: 20230919
  10. BETNOVATE [Concomitant]
     Active Substance: BETAMETHASONE
     Indication: Rash
     Dosage: UNK, PRN; AS NECESSARY?					;
     Dates: start: 20230920
  11. BETNOVATE [Concomitant]
     Active Substance: BETAMETHASONE
     Indication: Rash
     Dosage: DOSAGE TEXT: UNK, PRN; AS NECESSARY
     Route: 061
     Dates: start: 20230920
  12. CHLORPHENIRAMINE MALEATE [Concomitant]
     Active Substance: CHLORPHENIRAMINE MALEATE
     Indication: Hypersensitivity
     Dosage: DOSAGE TEXT: 5 MG, FREQUENCY TIME : 1 DAY, DURATION : 2 DAYS
     Route: 050
     Dates: start: 20230916, end: 20230917
  13. CHLORPHENIRAMINE MALEATE [Concomitant]
     Active Substance: CHLORPHENIRAMINE MALEATE
     Indication: Hypersensitivity
     Dosage: DOSAGE TEXT: 4 MG, PRN, TABLET; AS NECESSARY, DURATION : 1 DAYS
     Route: 050
     Dates: start: 20230917, end: 20230917
  14. CHLORPHENIRAMINE MALEATE [Concomitant]
     Active Substance: CHLORPHENIRAMINE MALEATE
     Indication: Hypersensitivity
     Dosage: DOSAGE TEXT: 10 MG, PRN, INJECTION; AS NECESSARY
     Route: 050
     Dates: start: 20230912
  15. CLOTRIMAZOLE [Concomitant]
     Active Substance: CLOTRIMAZOLE
     Indication: Rash
     Dosage: BID;
     Dates: start: 20230917
  16. CLOTRIMAZOLE [Concomitant]
     Active Substance: CLOTRIMAZOLE
     Indication: Rash
     Dosage: DOSAGE TEXT: BID
     Route: 050
     Dates: start: 20230917
  17. COTRIMOXAZOLE [Concomitant]
     Active Substance: SULFAMETHOXAZOLE\TRIMETHOPRIM
     Indication: Antibiotic prophylaxis
     Dosage: DOSAGE TEXT: 480 MILLIGRAM, TWICE A DAY ON MON, WED, FRI, UNIT DOSE : 1440 MG, FREQUENCY TIME : 1...
     Route: 050
     Dates: start: 20230906
  18. ISOPROPYL MYRISTATE\MINERAL OIL [Concomitant]
     Active Substance: ISOPROPYL MYRISTATE\MINERAL OIL
     Indication: Rash
     Dosage: UNK, PRN; AS NECESSARY?					;
     Dates: start: 20230919
  19. ISOPROPYL MYRISTATE\MINERAL OIL [Concomitant]
     Active Substance: ISOPROPYL MYRISTATE\MINERAL OIL
     Indication: Rash
     Dosage: DOSAGE TEXT: UNK, PRN; AS NECESSARY
     Route: 061
     Dates: start: 20230919
  20. FAMOTIDINE [Concomitant]
     Active Substance: FAMOTIDINE
     Indication: Reflux gastritis
     Dosage: DOSAGE TEXT: 20 MILLIGRAM, BID, UNIT DOSE: 40 MG, FREQUENCY TIME: 1 DAY
     Route: 050
     Dates: start: 20230909
  21. FILGRASTIM [Concomitant]
     Active Substance: FILGRASTIM
     Indication: Neutrophil count decreased
     Dosage: DOSAGE TEXT: 300 MICROGRAM, QD, DURATION : 2 DAYS
     Route: 050
     Dates: start: 20230914, end: 20230915
  22. FLUDARABINE [Suspect]
     Active Substance: FLUDARABINE PHOSPHATE
     Indication: Neoplasm
     Route: 042
     Dates: start: 20230907, end: 20230911
  23. FLUCONAZOLE [Concomitant]
     Active Substance: FLUCONAZOLE
     Indication: Antiviral prophylaxis
     Dosage: DOSAGE TEXT: 200 MILLIGRAM, QD
     Route: 050
     Dates: start: 20230915
  24. POTASSIUM CHLORIDE [Concomitant]
     Active Substance: POTASSIUM CHLORIDE
     Indication: Fluid replacement
     Dosage: 1000 ML AT ONCE OVER 6 HOURS; ;
     Dates: start: 20230914, end: 20230914
  25. POTASSIUM CHLORIDE [Concomitant]
     Active Substance: POTASSIUM CHLORIDE
     Indication: Fluid replacement
     Dosage: DOSAGE TEXT: 1000 ML,  CONTINUOUS INFUSION; DURATION : 2 DAYS
     Route: 050
     Dates: start: 20230918, end: 20230919
  26. POTASSIUM CHLORIDE [Concomitant]
     Active Substance: POTASSIUM CHLORIDE
     Indication: Fluid replacement
     Dosage: DOSAGE TEXT: 250 ML, ONCE ONLY; DURATION : 1 DAY
     Route: 050
     Dates: start: 20230914, end: 20230914
  27. POTASSIUM CHLORIDE [Concomitant]
     Active Substance: POTASSIUM CHLORIDE
     Indication: Fluid replacement
     Dosage: DOSAGE TEXT: 1000 MILLILITER, CONTINUOUS INFUSION; DURATION : 1 DAY
     Dates: start: 20230915, end: 20230915
  28. POTASSIUM CHLORIDE [Concomitant]
     Active Substance: POTASSIUM CHLORIDE
     Indication: Fluid replacement
     Dosage: DOSAGE TEXT: 1000 ML AT ONCE; DURATION : 1 DAY
     Dates: start: 20230912, end: 20230912
  29. POTASSIUM CHLORIDE [Concomitant]
     Active Substance: POTASSIUM CHLORIDE
     Indication: Fluid replacement
     Dosage: DOSAGE TEXT: 1000 ML AT ONCE OVER 6 HOURS; DURATION : 1 DAY
     Route: 050
     Dates: start: 20230914, end: 20230914
  30. CALCIUM CHLORIDE [Concomitant]
     Active Substance: CALCIUM CHLORIDE
     Indication: Fluid replacement
     Dosage: DOSAGE TEXT: 1000 MILLILITER, CONTINUOUS INFUSION; DURATION : 1 DAY
     Dates: start: 20230915, end: 20230915
  31. CALCIUM CHLORIDE [Concomitant]
     Active Substance: CALCIUM CHLORIDE
     Indication: Fluid replacement
     Dosage: DOSAGE TEXT: 250 ML, ONCE ONLY; DURATION : 1 DAY
     Route: 050
     Dates: start: 20230914, end: 20230914
  32. CALCIUM CHLORIDE [Concomitant]
     Active Substance: CALCIUM CHLORIDE
     Indication: Fluid replacement
     Dosage: DOSAGE TEXT: 1000 ML,  CONTINUOUS INFUSION; DURATION : 2 DAYS
     Route: 050
     Dates: start: 20230918, end: 20230919
  33. SODIUM LACTATE [Concomitant]
     Active Substance: SODIUM LACTATE
     Indication: Fluid replacement
     Dosage: DOSAGE TEXT: 1000 ML,  CONTINUOUS INFUSION; DURATION :2 DAYS
     Route: 050
     Dates: start: 20230918, end: 20230919
  34. SODIUM LACTATE [Concomitant]
     Active Substance: SODIUM LACTATE
     Indication: Fluid replacement
     Dosage: DOSAGE TEXT: 250 ML, ONCE ONLY; ;DURATION : 1 DAY
     Route: 050
     Dates: start: 20230914, end: 20230914
  35. SODIUM LACTATE [Concomitant]
     Active Substance: SODIUM LACTATE
     Indication: Fluid replacement
     Dosage: DOSAGE TEXT: 1000 MILLILITER, CONTINUOUS INFUSION; DURATION : 1 DAY
     Dates: start: 20230915, end: 20230915
  36. LEVOMEPROMAZINE [Concomitant]
     Active Substance: LEVOMEPROMAZINE
     Indication: Nausea
     Dosage: DOSAGE TEXT: 3.125 MG, PRN; AS NECESSARY
     Route: 050
     Dates: start: 20230906
  37. POLYETHYLENE GLYCOLS [Concomitant]
     Active Substance: POLYETHYLENE GLYCOLS
     Indication: Constipation
     Dosage: 1 SACHET EVERY 12H PER NEED; AS NECESSARY?					;
     Dates: start: 20230911
  38. POLYETHYLENE GLYCOLS [Concomitant]
     Active Substance: POLYETHYLENE GLYCOLS
     Indication: Constipation
     Dosage: DOSAGE TEXT: 1 SACHET EVERY 12H PER NEED; AS NECESSARY
     Route: 050
     Dates: start: 20230911
  39. MAGNESIUM SULFATE [Concomitant]
     Active Substance: MAGNESIUM SULFATE\MAGNESIUM SULFATE HEPTAHYDRATE
     Indication: Fluid replacement
     Dosage: 20 MMOL; ;
     Dates: start: 20230914, end: 20230914
  40. MAGNESIUM SULFATE [Concomitant]
     Active Substance: MAGNESIUM SULFATE\MAGNESIUM SULFATE HEPTAHYDRATE
     Indication: Fluid replacement
     Dosage: DOSAGE TEXT: 20 MMOL; DURATION : 1 DAY
     Route: 050
     Dates: start: 20230914, end: 20230914
  41. MEDIDERM [Concomitant]
     Indication: Rash
     Dosage: DOSAGE TEXT: SACHET, PRN; AS NECESSARY
     Route: 061
     Dates: start: 20230916
  42. MENTHOL [Concomitant]
     Active Substance: MENTHOL
     Indication: Rash
     Dosage: EVERY 6 HOURS, PRN; AS NECESSARY?					;
     Dates: start: 20230915
  43. MENTHOL [Concomitant]
     Active Substance: MENTHOL
     Indication: Rash
     Dosage: DOSAGE TEXT: EVERY 6 HOURS, PRN; AS NECESSARY
     Route: 061
     Dates: start: 20230915
  44. SODIUM CHLORIDE [Concomitant]
     Active Substance: SODIUM CHLORIDE
     Indication: Fluid replacement
     Dosage: DOSAGE TEXT: 1000 ML AT ONCE; DURATION : 1 DAY
     Route: 050
     Dates: start: 20230913, end: 20230913
  45. ONDANSETRON [Concomitant]
     Active Substance: ONDANSETRON
     Indication: Nausea
     Dosage: DOSAGE TEXT: 8 MG, Q8H, DURATION : 5 DAYS
     Route: 050
     Dates: start: 20230908, end: 20230912
  46. ONDANSETRON [Concomitant]
     Active Substance: ONDANSETRON
     Indication: Nausea
     Dosage: DOSAGE TEXT: 8 MG, PRN; AS NECESSARY, DURATION : 4 DAYS
     Route: 050
     Dates: start: 20230912, end: 20230915
  47. ACETAMINOPHEN [Concomitant]
     Active Substance: ACETAMINOPHEN
     Indication: Headache
     Dosage: DOSAGE TEXT: 1000 MG PRN EVERY 6 HOURS; AS NECESSARY, DURATION : 9 DAYS
     Route: 050
     Dates: start: 20230906, end: 20230914
  48. ACETAMINOPHEN [Concomitant]
     Active Substance: ACETAMINOPHEN
     Indication: Headache
     Dosage: DOSAGE TEXT: 1000 MG, PRN EVERY 6 HOURS; AS NECESSARY
     Route: 050
     Dates: start: 20230914
  49. ACETAMINOPHEN [Concomitant]
     Active Substance: ACETAMINOPHEN
     Indication: Headache
     Dosage: DOSAGE TEXT: 1 GRAM, PRN EVERY 6 HOURS; AS NECESSARY
     Route: 050
     Dates: start: 20230914
  50. MEPERIDINE [Concomitant]
     Active Substance: MEPERIDINE
     Indication: Chills
     Dosage: 25-50 MG EVERY 4 HOURS IF NEEDED; AS NECESSARY?					;
     Dates: start: 20230913
  51. MEPERIDINE [Concomitant]
     Active Substance: MEPERIDINE
     Indication: Chills
     Dosage: DOSAGE TEXT: 25-50 MG EVERY 4 HOURS IF NEEDED; AS NECESSARY
     Route: 050
     Dates: start: 20230913
  52. PIPERACILLIN AND TAZOBACTAM [Concomitant]
     Active Substance: PIPERACILLIN SODIUM\TAZOBACTAM SODIUM
     Indication: Sepsis
     Dosage: DOSAGE TEXT: 4.5 GRAM, Q6H, DURATION : 6 DAYS
     Route: 050
     Dates: start: 20230914, end: 20230919
  53. SANDO-K [Concomitant]
     Indication: Blood potassium decreased
     Dosage: DOSAGE TEXT: 2 DOSAGE FORM, BID, UNIT DOSE : 4 DF, FREQUENCY TIME: 1 DAY, DURATION : 1 DAY
     Route: 050
     Dates: start: 20230914, end: 20230914
  54. SUCRALFATE [Concomitant]
     Active Substance: SUCRALFATE
     Indication: Reflux gastritis
     Dosage: DOSAGE TEXT: 1 GRAM, PRN EVERY 6 HOURS, ORAL SUSPENSION; AS NECESSARY
     Route: 048
     Dates: start: 20230911
  55. TINZAPARIN [Concomitant]
     Active Substance: TINZAPARIN
     Indication: Prophylaxis
     Dosage: DOSAGE TEXT: 4500 UNITS, QD
     Route: 050
     Dates: start: 20230918
  56. ZOPICLONE [Concomitant]
     Active Substance: ZOPICLONE
     Indication: Insomnia
     Dosage: DOSAGE TEXT: 3.75 MILLIGRAM, PRN AT NIGHT; AS NECESSARY, DURATION : 2 DAYS
     Route: 050
     Dates: start: 20230917, end: 20230918
  57. TAUROLIDINE [Concomitant]
     Active Substance: TAUROLIDINE
     Indication: Product used for unknown indication
  58. QV BATH [Concomitant]
     Indication: Product used for unknown indication
  59. CALCIUM CHLORIDE\POTASSIUM CHLORIDE\SODIUM CHLORIDE\SODIUM LACTATE [Concomitant]
     Active Substance: CALCIUM CHLORIDE\POTASSIUM CHLORIDE\SODIUM CHLORIDE\SODIUM LACTATE
     Indication: Fluid replacement
     Dosage: 1000 MILLILITER, CONTINUOUS INFUSION;
     Dates: start: 20230915, end: 20230915
  60. CALCIUM CHLORIDE\POTASSIUM CHLORIDE\SODIUM CHLORIDE\SODIUM LACTATE [Concomitant]
     Active Substance: CALCIUM CHLORIDE\POTASSIUM CHLORIDE\SODIUM CHLORIDE\SODIUM LACTATE
     Indication: Fluid replacement
     Dosage: 250 ML, ONCE ONLY;
     Dates: start: 20230914, end: 20230914
  61. CALCIUM CHLORIDE\POTASSIUM CHLORIDE\SODIUM CHLORIDE\SODIUM LACTATE [Concomitant]
     Active Substance: CALCIUM CHLORIDE\POTASSIUM CHLORIDE\SODIUM CHLORIDE\SODIUM LACTATE
     Indication: Fluid replacement
     Dosage: 1000 ML,  CONTINUOUS INFUSION;
     Dates: start: 20230918, end: 20230919
  62. ACYCLOVIR [Concomitant]
     Active Substance: ACYCLOVIR
     Indication: Antiviral prophylaxis
     Dosage: DOSAGE TEXT: UNK, TID, UNIT DOSE : 1200 MG
     Route: 050
     Dates: start: 20230905
  63. ADCAL [Concomitant]
     Indication: Vitamin supplementation
     Dosage: DOSAGE TEXT: 1 DOSAGE FORM, BID, UNIT DOSE : 2 DF, FREQUENCY TIME : 1 DAY
     Route: 050
     Dates: start: 20230907

REACTIONS (2)
  - Iridocyclitis [Recovered/Resolved]
  - Uveitis [Recovering/Resolving]

NARRATIVE: CASE EVENT DATE: 20230919
